FAERS Safety Report 11119593 (Version 6)
Quarter: 2015Q3

REPORT INFORMATION
  Report Type: Report from Study
  Country: GB (occurrence: GB)
  Receive Date: 20150518
  Receipt Date: 20150721
  Transmission Date: 20151125
  Serious: Yes (Other)
  Sender: FDA-Public Use
  Company Number: GB-GLAXOSMITHKLINE-GB2015GSK065286

PATIENT
  Age: 44 Year
  Sex: Female
  Weight: 63.8 kg

DRUGS (16)
  1. CORSODYL [Concomitant]
     Active Substance: CHLORHEXIDINE GLUCONATE
     Dosage: 10 ML, QID
     Dates: start: 20150128
  2. RANITIDINE [Concomitant]
     Active Substance: RANITIDINE\RANITIDINE HYDROCHLORIDE
     Indication: GASTROOESOPHAGEAL REFLUX PROPHYLAXIS
     Dosage: 150 MG, BID
     Route: 048
     Dates: start: 20150129
  3. CIPROFLOXACIN. [Concomitant]
     Active Substance: CIPROFLOXACIN
     Indication: ANTIBIOTIC PROPHYLAXIS
     Dosage: 600 MG, BID
     Route: 048
     Dates: start: 20150302
  4. LINEZOLID. [Concomitant]
     Active Substance: LINEZOLID
     Indication: ANTIBIOTIC PROPHYLAXIS
     Dosage: 600 MG
     Route: 048
     Dates: start: 20150302, end: 20150412
  5. NYSTATIN. [Concomitant]
     Active Substance: NYSTATIN
     Dosage: 1 ML, QD
     Route: 048
     Dates: start: 20150323
  6. AMIKACIN [Concomitant]
     Active Substance: AMIKACIN
     Indication: BACTERIAL INFECTION
     Dosage: 930 MG, UNK
     Route: 042
     Dates: start: 20150403, end: 20150407
  7. NORISTERAT [Concomitant]
     Dosage: 5 MG, TID
     Route: 048
     Dates: start: 20150302
  8. ZOPICLONE [Concomitant]
     Active Substance: ZOPICLONE
     Indication: INSOMNIA
     Dosage: 3.75 MG, QD
     Route: 048
     Dates: start: 20150318
  9. MERCAPTOPURINE. [Concomitant]
     Active Substance: MERCAPTOPURINE
     Indication: ACUTE LYMPHOCYTIC LEUKAEMIA
     Dosage: 100 MG, UNK
     Route: 048
     Dates: start: 20150318, end: 20150414
  10. ACICLOVIR [Concomitant]
     Active Substance: ACYCLOVIR
     Indication: ANTIVIRAL PROPHYLAXIS
     Dosage: 200 MG, TID
     Route: 048
     Dates: start: 20150127
  11. PEGYLATED ASPARAGINASE [Suspect]
     Active Substance: PEGASPARGASE
     Indication: ACUTE LYMPHOCYTIC LEUKAEMIA
     Dosage: 1700 DF, QD
     Route: 042
     Dates: start: 20150214, end: 20150214
  12. PEPTAC SUSPENSION [Concomitant]
     Dosage: 10 UNK, UNK
     Route: 048
     Dates: start: 20150404
  13. CALOGEN EXTRA [Concomitant]
     Indication: ILL-DEFINED DISORDER
     Dosage: 30 ML, BID
     Route: 048
     Dates: start: 20150304
  14. PROCAL [Concomitant]
     Active Substance: SODIUM FLUORIDE
     Indication: ILL-DEFINED DISORDER
     Dosage: 30 ML, BID
     Route: 048
     Dates: start: 20150312
  15. NELARABINE [Suspect]
     Active Substance: NELARABINE
     Indication: ACUTE LYMPHOCYTIC LEUKAEMIA
     Dosage: 2.4 G, TID
     Route: 042
     Dates: start: 20150331, end: 20150404
  16. ITRACONAZOLE. [Concomitant]
     Active Substance: ITRACONAZOLE
     Indication: INFECTION PROPHYLAXIS
     Dosage: 200 MG, BID
     Route: 048
     Dates: start: 20150302, end: 20150411

REACTIONS (1)
  - Leukoencephalopathy [Recovered/Resolved]

NARRATIVE: CASE EVENT DATE: 20150506
